FAERS Safety Report 6450557-4 (Version None)
Quarter: 2009Q4

REPORT INFORMATION
  Report Type: 
  Country: None (occurrence: None)
  Receive Date: 20091123
  Receipt Date: 20091111
  Transmission Date: 20100525
  Serious: Yes (Other)
  Sender: FDA-Public Use
  Company Number: PHEH2009US14868

PATIENT
  Sex: Male

DRUGS (3)
  1. EXJADE [Suspect]
     Indication: MYELODYSPLASTIC SYNDROME
     Dosage: 1500 UNK, DAILY
     Route: 048
     Dates: start: 20091022
  2. EXJADE [Suspect]
     Indication: LYMPHATIC SYSTEM NEOPLASM
  3. XANAX [Concomitant]
     Dosage: UNK
     Dates: start: 20091028

REACTIONS (4)
  - CHEST DISCOMFORT [None]
  - DIZZINESS [None]
  - DYSPEPSIA [None]
  - RETINAL HAEMORRHAGE [None]
